FAERS Safety Report 4953042-1 (Version None)
Quarter: 2006Q1

REPORT INFORMATION
  Report Type: 
  Country: None (occurrence: None)
  Receive Date: 20060320
  Receipt Date: 20060303
  Transmission Date: 20060701
  Serious: Yes (Hospitalization)
  Sender: FDA-Public Use
  Company Number: 2006BI000025

PATIENT
  Age: 38 Year
  Sex: Female

DRUGS (4)
  1. AVONEX [Suspect]
     Indication: MULTIPLE SCLEROSIS
     Dosage: 30 UG;QW;IM
     Route: 030
     Dates: start: 20050623, end: 20051101
  2. MOTRIN [Concomitant]
  3. FLEXERIL [Concomitant]
  4. TRAZODONE HCL [Concomitant]

REACTIONS (5)
  - CATHETERISATION CARDIAC [None]
  - ESCHERICHIA INFECTION [None]
  - INFLUENZA LIKE ILLNESS [None]
  - PALPITATIONS [None]
  - URINARY TRACT INFECTION [None]
